FAERS Safety Report 8973096 (Version 1)
Quarter: 2012Q4

REPORT INFORMATION
  Report Type: 
  Country: US (occurrence: US)
  Receive Date: 20121218
  Receipt Date: 20121218
  Transmission Date: 20130627
  Serious: No
  Sender: FDA-Public Use
  Company Number: US-BRISTOL-MYERS SQUIBB COMPANY-16998205

PATIENT
  Sex: Female

DRUGS (3)
  1. ABILIFY [Suspect]
     Indication: BIPOLAR I DISORDER
     Dosage: about 3 months ago,21Sep12,Abilify dose incd from 10mg at bedtime to 15mg,day time,dose incd
     Dates: start: 2012
  2. LAMICTAL [Concomitant]
  3. WELLBUTRIN SR [Concomitant]

REACTIONS (1)
  - Fatigue [Unknown]
